FAERS Safety Report 6671973-1 (Version None)
Quarter: 2010Q2

REPORT INFORMATION
  Report Type: 
  Country: None (occurrence: None)
  Receive Date: 20100407
  Receipt Date: 20100401
  Transmission Date: 20101027
  Serious: Yes (Hospitalization)
  Sender: FDA-Public Use
  Company Number: US-GILEAD-2010-0027834

PATIENT
  Sex: Female
  Weight: 81.72 kg

DRUGS (16)
  1. LETAIRIS [Suspect]
     Indication: PULMONARY ARTERIAL HYPERTENSION
     Route: 048
     Dates: start: 20090509
  2. AMIODARONE HCL [Concomitant]
  3. TOPROL-XL [Concomitant]
  4. SYNTHROID [Concomitant]
  5. LASIX [Concomitant]
  6. ALPHAGAN [Concomitant]
  7. CYMBALTA [Concomitant]
  8. VITAMIN E [Concomitant]
  9. CALTRATE WITH D [Concomitant]
  10. VITAMIN B-12 [Concomitant]
  11. PRAVASTATIN [Concomitant]
  12. NEXIUM [Concomitant]
  13. ASCORBIC ACID [Concomitant]
  14. VITAMIN D [Concomitant]
  15. LOVAZA [Concomitant]
  16. ASPIRIN [Concomitant]

REACTIONS (1)
  - ATRIAL FIBRILLATION [None]
